FAERS Safety Report 10381677 (Version 1)
Quarter: 2014Q1

REPORT INFORMATION
  Report Type: Spontaneous
  Country: US (occurrence: None)
  Receive Date: 20140306
  Receipt Date: 20140306
  Transmission Date: 20141002
  Serious: Yes (Disabling)
  Sender: FDA-Public Use
  Company Number: 163-21880-13090262

PATIENT
  Age: 57 Year
  Sex: Female
  Weight: 61.69 kg

DRUGS (3)
  1. REVLIMID [Suspect]
     Indication: PLASMA CELL MYELOMA
     Dosage: 25 MG, 21 IN 21 D
     Route: 048
     Dates: start: 20130605, end: 20130829
  2. ZANTAC (RANITIDINE HYDROCHLORIDE) (TABLETS) [Concomitant]
  3. VELCADE (BORTEZOMIB) (TABLETS) [Concomitant]

REACTIONS (1)
  - Pain in extremity [None]
